FAERS Safety Report 22393251 (Version 3)
Quarter: 2023Q2

REPORT INFORMATION
  Report Type: Report from Study
  Country: AE (occurrence: None)
  Receive Date: 20230601
  Receipt Date: 20230616
  Transmission Date: 20230721
  Serious: Yes (Hospitalization)
  Sender: FDA-Public Use
  Company Number: 2023A122944

PATIENT
  Age: 64 Year
  Sex: Male
  Weight: 90 kg

DRUGS (4)
  1. EVUSHELD [Suspect]
     Active Substance: CILGAVIMAB\TIXAGEVIMAB
     Indication: COVID-19 treatment
     Dosage: 600 MG GLUTEUS
     Route: 030
     Dates: start: 20230123
  2. SARS-COV-2 VACCINE (VERO CELL), INACTIVATED [Concomitant]
     Indication: COVID-19
     Dates: start: 20210118
  3. SARS-COV-2 VACCINE (VERO CELL), INACTIVATED [Concomitant]
     Indication: COVID-19
     Dates: start: 20210208
  4. PFIZER-BIONTECH COVID-19 VACCINE [Concomitant]
     Active Substance: TOZINAMERAN
     Indication: COVID-19
     Dates: start: 20210901

REACTIONS (1)
  - Atrial fibrillation [Recovered/Resolved]

NARRATIVE: CASE EVENT DATE: 20230430
